FAERS Safety Report 14734241 (Version 1)
Quarter: 2018Q2

REPORT INFORMATION
  Report Type: Spontaneous
  Country: IT (occurrence: IT)
  Receive Date: 20180409
  Receipt Date: 20180409
  Transmission Date: 20180711
  Serious: Yes (Other)
  Sender: FDA-Public Use
  Company Number: IT-TEVA-2018-IT-877005

PATIENT
  Age: 74 Year
  Sex: Female

DRUGS (2)
  1. XANAX [Concomitant]
     Active Substance: ALPRAZOLAM
     Route: 065
  2. VENLAFAXINE [Suspect]
     Active Substance: VENLAFAXINE HYDROCHLORIDE
     Indication: DRUG ABUSE
     Route: 048
     Dates: start: 20180102, end: 20180102

REACTIONS (1)
  - Drug abuse [Recovering/Resolving]

NARRATIVE: CASE EVENT DATE: 20180102
